FAERS Safety Report 23080791 (Version 1)
Quarter: 2023Q4

REPORT INFORMATION
  Report Type: Spontaneous
  Country: US (occurrence: None)
  Receive Date: 20231018
  Receipt Date: 20231018
  Transmission Date: 20240110
  Serious: Yes (Other)
  Sender: FDA-Public Use
  Company Number: None

PATIENT
  Sex: Female

DRUGS (2)
  1. HYDROXYUREA [Suspect]
     Active Substance: HYDROXYUREA
     Indication: Polycythaemia vera
     Dosage: FREQUENCY : AS DIRECTED;?
     Route: 048
     Dates: start: 20171229
  2. HYDROXYUREA [Suspect]
     Active Substance: HYDROXYUREA
     Dosage: FREQUENCY : AS DIRECTED;?
     Route: 048

REACTIONS (1)
  - Malignant melanoma [None]
